FAERS Safety Report 10030608 (Version 2)
Quarter: 2014Q1

REPORT INFORMATION
  Report Type: Spontaneous
  Country: US (occurrence: US)
  Receive Date: 20140323
  Receipt Date: 20140323
  Transmission Date: 20141002
  Serious: No
  Sender: FDA-Public Use
  Company Number: US-ALLERGAN-1317708US

PATIENT
  Age: 6 Decade
  Sex: Female

DRUGS (3)
  1. LATISSE 0.03% [Suspect]
     Indication: GROWTH OF EYELASHES
     Dosage: 2 GTT, QHS
     Route: 061
  2. PRED FORTE [Concomitant]
     Indication: CATARACT
     Dosage: UNK
  3. ACUVAIL [Concomitant]
     Indication: CATARACT
     Dosage: UNK

REACTIONS (2)
  - Eye discharge [Recovered/Resolved]
  - Ocular hyperaemia [Recovered/Resolved]
